APPROVED DRUG PRODUCT: ORPHENADRINE CITRATE
Active Ingredient: ORPHENADRINE CITRATE
Strength: 30MG/ML
Dosage Form/Route: INJECTABLE;INJECTION
Application: A090585 | Product #001 | TE Code: AP
Applicant: SAGENT PHARMACEUTICALS INC
Approved: Aug 30, 2011 | RLD: No | RS: No | Type: RX